FAERS Safety Report 23493838 (Version 1)
Quarter: 2024Q1

REPORT INFORMATION
  Report Type: Spontaneous
  Country: US (occurrence: None)
  Receive Date: 20240206
  Receipt Date: 20240206
  Transmission Date: 20240409
  Serious: Yes (Disabling, Other)
  Sender: FDA-Public Use
  Company Number: None

PATIENT
  Age: 44 Year
  Sex: Female
  Weight: 94.5 kg

DRUGS (4)
  1. INVEGA SUSTENNA [Suspect]
     Active Substance: PALIPERIDONE PALMITATE
     Indication: Schizoaffective disorder
     Dosage: EVERY MONTH INTRAMUSCULAR?
     Route: 030
     Dates: start: 20240126, end: 20240202
  2. INVEGA SUSTENNA [Suspect]
     Active Substance: PALIPERIDONE PALMITATE
     Indication: Psychotic disorder
  3. JARDIANCE [Concomitant]
     Active Substance: EMPAGLIFLOZIN
  4. GLIMEPIRIDE [Concomitant]
     Active Substance: GLIMEPIRIDE

REACTIONS (12)
  - Urticaria [None]
  - Dyspnoea [None]
  - Blood pressure decreased [None]
  - Constipation [None]
  - Tremor [None]
  - Dyskinesia [None]
  - Asthenia [None]
  - Somnolence [None]
  - Product after taste [None]
  - Decreased appetite [None]
  - Peripheral swelling [None]
  - Hypoaesthesia [None]

NARRATIVE: CASE EVENT DATE: 20240126
